FAERS Safety Report 21916996 (Version 2)
Quarter: 2023Q2

REPORT INFORMATION
  Report Type: Report from Study
  Country: US (occurrence: US)
  Receive Date: 20230126
  Receipt Date: 20230622
  Transmission Date: 20230721
  Serious: Yes (Disabling, Other)
  Sender: FDA-Public Use
  Company Number: US-Merck Healthcare KGaA-9350775

PATIENT
  Age: 34 Year
  Sex: Female
  Weight: 101 kg

DRUGS (2)
  1. MAVENCLAD [Suspect]
     Active Substance: CLADRIBINE
     Indication: Multiple sclerosis
     Dosage: YEAR ONE MONTH ONE THERAPY
     Route: 048
     Dates: start: 20220729, end: 20220802
  2. MAVENCLAD [Suspect]
     Active Substance: CLADRIBINE
     Dosage: YEAR ONE MONTH TWO THERAPY
     Route: 048
     Dates: start: 20220825, end: 20220829

REACTIONS (10)
  - Goitre [Not Recovered/Not Resolved]
  - Thyroid cyst [Not Recovered/Not Resolved]
  - Thyroid cancer [Unknown]
  - Thyroid disorder [Unknown]
  - Platelet count decreased [Unknown]
  - Lymphadenopathy [Unknown]
  - Blood potassium abnormal [Unknown]
  - Blood sodium abnormal [Unknown]
  - Blood cholesterol increased [Unknown]
  - Lymphocyte count increased [Unknown]

NARRATIVE: CASE EVENT DATE: 20220901
